FAERS Safety Report 6032223-2 (Version None)
Quarter: 2009Q1

REPORT INFORMATION
  Report Type: 
  Country: None (occurrence: None)
  Receive Date: 20090108
  Receipt Date: 20081229
  Transmission Date: 20090719
  Serious: No
  Sender: FDA-Public Use
  Company Number: US-B.I. PHARMACEUTICALS,INC./RIDGEFIELD-2008-BP-19222BP

PATIENT
  Sex: Female

DRUGS (10)
  1. ZANTAC 150 [Suspect]
     Indication: PROPHYLAXIS
     Dosage: 300MG
     Route: 048
     Dates: start: 20081216, end: 20081229
  2. CLONIDINE [Concomitant]
     Dates: start: 19900101
  3. PREVACID [Concomitant]
  4. BENICAR [Concomitant]
  5. HYDROCHLOROTHIAZIDE [Concomitant]
     Indication: BLOOD PRESSURE
  6. FOSAMAX [Concomitant]
     Dates: start: 20030101
  7. AZMACORT [Concomitant]
  8. COMBIVENT [Concomitant]
  9. AMBIEN CR [Concomitant]
  10. ATIVAN [Concomitant]
     Indication: ANXIETY

REACTIONS (3)
  - ABDOMINAL DISTENSION [None]
  - DRUG INEFFECTIVE [None]
  - MUSCULOSKELETAL CHEST PAIN [None]
